FAERS Safety Report 15775174 (Version 5)
Quarter: 2022Q2

REPORT INFORMATION
  Report Type: Report from Study
  Country: CN (occurrence: None)
  Receive Date: 20181231
  Receipt Date: 20220419
  Transmission Date: 20220721
  Serious: Yes (Hospitalization)
  Sender: FDA-Public Use
  Company Number: CN-ROCHE-2235413

PATIENT
  Age: 67 Year
  Sex: Male
  Weight: 57 kg

DRUGS (50)
  1. ALECTINIB [Suspect]
     Active Substance: ALECTINIB
     Indication: Non-small cell lung cancer
     Dosage: DATE OF MOST RECENT DOSE OF ALECTINIB (600 MG) PRIOR TO SAE: 14/DEC/2018.
     Route: 048
     Dates: start: 20161216
  2. NOVOLTEN [Concomitant]
     Indication: Rheumatoid arthritis
     Dates: start: 20161216
  3. LEFLUNOMIDE [Concomitant]
     Active Substance: LEFLUNOMIDE
     Indication: Rheumatoid arthritis
     Dates: start: 20161216
  4. LEVOFLOXACIN [Concomitant]
     Active Substance: LEVOFLOXACIN
     Dosage: AT 12.20
     Dates: start: 20181218
  5. LEVOFLOXACIN [Concomitant]
     Active Substance: LEVOFLOXACIN
     Dates: start: 20181228, end: 20190103
  6. LEVOFLOXACIN [Concomitant]
     Active Substance: LEVOFLOXACIN
     Dates: start: 20181218, end: 20181220
  7. ESTAZOLAM [Concomitant]
     Active Substance: ESTAZOLAM
     Dosage: AT 12.20
     Dates: start: 20181218, end: 20181220
  8. PANTOPRAZOLE SODIUM [Concomitant]
     Active Substance: PANTOPRAZOLE SODIUM
     Indication: Gastric lavage
     Dosage: AT 12.19
     Dates: start: 20181218
  9. PANTOPRAZOLE SODIUM [Concomitant]
     Active Substance: PANTOPRAZOLE SODIUM
     Dates: start: 20181225, end: 20190103
  10. PANTOPRAZOLE SODIUM [Concomitant]
     Active Substance: PANTOPRAZOLE SODIUM
     Dates: start: 20181218, end: 20181219
  11. DEXTROSE [Concomitant]
     Active Substance: DEXTROSE
     Dates: start: 20181219
  12. DEXTROSE [Concomitant]
     Active Substance: DEXTROSE
     Dates: start: 20181221, end: 20181222
  13. DEXTROSE [Concomitant]
     Active Substance: DEXTROSE
     Dates: start: 20181225, end: 20190103
  14. DEXTROSE [Concomitant]
     Active Substance: DEXTROSE
     Dates: start: 20181218, end: 20181219
  15. COMPOUND EOSINOPHIL LACTOBACILLUS [Concomitant]
     Dates: start: 20181221, end: 20181225
  16. MEGESTROL ACETATE [Concomitant]
     Active Substance: MEGESTROL ACETATE
     Dates: start: 20181221, end: 20181226
  17. LIDOCAINE HYDROCHLORIDE [Concomitant]
     Active Substance: LIDOCAINE HYDROCHLORIDE
     Indication: Hypoaesthesia
     Dates: start: 20181222, end: 20181222
  18. LIPOSYN (R) INTRAVENOUS FAT EMULSION [Concomitant]
     Active Substance: LIPOSYN (R) INTRAVENOUS FAT EMULSION
     Indication: Nutritional supplementation
     Dates: start: 20181222, end: 20181225
  19. LIPOSYN (R) INTRAVENOUS FAT EMULSION [Concomitant]
     Active Substance: LIPOSYN (R) INTRAVENOUS FAT EMULSION
     Dates: start: 20181227, end: 20190103
  20. INSULIN NOS [Concomitant]
     Active Substance: INSULIN NOS
     Dates: start: 20181222, end: 20181225
  21. ALBUMIN HUMAN [Concomitant]
     Active Substance: ALBUMIN HUMAN
     Indication: Blood albumin decreased
     Dates: start: 20181222, end: 20181223
  22. POTASSIUM CHLORIDE [Concomitant]
     Active Substance: POTASSIUM CHLORIDE
     Indication: Polyuria
     Dates: start: 20181221, end: 20190103
  23. POTASSIUM CHLORIDE [Concomitant]
     Active Substance: POTASSIUM CHLORIDE
     Indication: Mineral supplementation
     Dates: start: 20190101, end: 20190113
  24. HUMAN RED BLOOD CELL [Concomitant]
     Active Substance: HUMAN RED BLOOD CELL
     Indication: Anaemia
     Dates: start: 20181222, end: 20181222
  25. DEXMEDETOMIDINE HYDROCHLORIDE [Concomitant]
     Active Substance: DEXMEDETOMIDINE HYDROCHLORIDE
     Indication: Sedation
     Dates: start: 20181223, end: 20181223
  26. CALCIUM GLUCONATE [Concomitant]
     Active Substance: CALCIUM GLUCONATE
     Dates: start: 20181223, end: 20181223
  27. ESTAZOLAM [Concomitant]
     Active Substance: ESTAZOLAM
     Dates: start: 20181225, end: 20181225
  28. ESTAZOLAM [Concomitant]
     Active Substance: ESTAZOLAM
     Dates: start: 20181228, end: 20181228
  29. ESTAZOLAM [Concomitant]
     Active Substance: ESTAZOLAM
     Dates: start: 20181231, end: 20181231
  30. ESTAZOLAM [Concomitant]
     Active Substance: ESTAZOLAM
     Dates: start: 20190101, end: 20190102
  31. ESTAZOLAM [Concomitant]
     Active Substance: ESTAZOLAM
     Dates: start: 20181218, end: 20181220
  32. SODIUM CHLORIDE [Concomitant]
     Active Substance: SODIUM CHLORIDE
     Dates: start: 20181221, end: 20181222
  33. SODIUM CHLORIDE [Concomitant]
     Active Substance: SODIUM CHLORIDE
     Dates: start: 20181221, end: 20181221
  34. SODIUM CHLORIDE [Concomitant]
     Active Substance: SODIUM CHLORIDE
     Dates: start: 20181225, end: 20181228
  35. VITAMIN B6 [Concomitant]
     Active Substance: PYRIDOXINE HYDROCHLORIDE
     Dates: start: 20181221, end: 20181222
  36. PANTOPRAZOLE SODIUM [Concomitant]
     Active Substance: PANTOPRAZOLE SODIUM
     Dates: start: 20181222, end: 20181223
  37. PANTOPRAZOLE SODIUM [Concomitant]
     Active Substance: PANTOPRAZOLE SODIUM
     Dates: start: 20181218, end: 20181219
  38. AMBROXOL HYDROCHLORIDE [Concomitant]
     Active Substance: AMBROXOL HYDROCHLORIDE
     Dates: start: 20181222, end: 20190103
  39. PULMICORT RESPULES [Concomitant]
     Active Substance: BUDESONIDE
     Dates: start: 20181223, end: 20181225
  40. IPRATROPIUM BROMIDE [Concomitant]
     Active Substance: IPRATROPIUM BROMIDE
     Dates: start: 20181223, end: 20181225
  41. VITAMIN C [Concomitant]
     Active Substance: ASCORBIC ACID
     Dates: start: 20181225, end: 20190103
  42. VITAMIN B6 [Concomitant]
     Active Substance: PYRIDOXINE HYDROCHLORIDE
  43. CEFOPERAZONE SODIUM\SULBACTAM SODIUM [Concomitant]
     Active Substance: CEFOPERAZONE SODIUM\SULBACTAM SODIUM
     Dates: start: 20181228, end: 20190103
  44. MONTMORILLONITE [Concomitant]
     Active Substance: MONTMORILLONITE
     Dates: start: 20181218, end: 20181220
  45. MONTMORILLONITE [Concomitant]
     Active Substance: MONTMORILLONITE
     Dates: start: 20181218, end: 20181219
  46. CEFTRIAXONE SODIUM [Concomitant]
     Active Substance: CEFTRIAXONE SODIUM
     Dates: start: 20181221, end: 20181227
  47. THROMBOPOIETIN [Concomitant]
     Active Substance: THROMBOPOIETIN
     Dates: start: 20181213
  48. THROMBOPOIETIN [Concomitant]
     Active Substance: THROMBOPOIETIN
     Dates: start: 20181221, end: 20181226
  49. PANTOPRAZOLE SODIUM [Concomitant]
     Active Substance: PANTOPRAZOLE SODIUM
     Dates: start: 20181218, end: 20181219
  50. DEXTROSE\SODIUM CHLORIDE [Concomitant]
     Active Substance: DEXTROSE\SODIUM CHLORIDE
     Dates: start: 20181222

REACTIONS (2)
  - Platelet count decreased [Recovered/Resolved]
  - Acute kidney injury [Recovered/Resolved]

NARRATIVE: CASE EVENT DATE: 20181221
